FAERS Safety Report 14576354 (Version 1)
Quarter: 2018Q1

REPORT INFORMATION
  Report Type: Report from Study
  Country: JP (occurrence: JP)
  Receive Date: 20180227
  Receipt Date: 20180227
  Transmission Date: 20180509
  Serious: Yes (Death, Hospitalization, Other)
  Sender: FDA-Public Use
  Company Number: JP-BRISTOL-MYERS SQUIBB COMPANY-10721710

PATIENT
  Age: 57 Year
  Sex: Male

DRUGS (5)
  1. STAVUDINE. [Suspect]
     Active Substance: STAVUDINE
     Indication: ACQUIRED IMMUNODEFICIENCY SYNDROME
     Dosage: 60 MG, UNK
     Route: 048
     Dates: start: 19990816, end: 19991031
  2. VIRACEPT [Suspect]
     Active Substance: NELFINAVIR MESYLATE
     Indication: ACQUIRED IMMUNODEFICIENCY SYNDROME
     Dosage: 2.5 G, UNK
     Route: 048
     Dates: start: 19960825, end: 19961031
  3. RETROVIR [Suspect]
     Active Substance: ZIDOVUDINE
     Indication: ACQUIRED IMMUNODEFICIENCY SYNDROME
     Dosage: 300 MG, UNK
     Route: 048
     Dates: start: 19981101, end: 19991031
  4. EPIVIR [Suspect]
     Active Substance: LAMIVUDINE
     Indication: ACQUIRED IMMUNODEFICIENCY SYNDROME
     Dosage: 300 MG, UNK
     Route: 048
     Dates: start: 19981101, end: 19991031
  5. BAKTAR [Suspect]
     Active Substance: SULFAMETHOXAZOLE\TRIMETHOPRIM
     Indication: ACQUIRED IMMUNODEFICIENCY SYNDROME
     Dosage: 1 G, UNK
     Route: 048
     Dates: start: 19981101, end: 19991031

REACTIONS (5)
  - Gallbladder cancer [Not Recovered/Not Resolved]
  - Anaemia [Not Recovered/Not Resolved]
  - Jaundice extrahepatic obstructive [Not Recovered/Not Resolved]
  - Bile duct cancer [Not Recovered/Not Resolved]
  - Death [Fatal]

NARRATIVE: CASE EVENT DATE: 19980918
